FAERS Safety Report 8300943-2 (Version None)
Quarter: 2012Q2

REPORT INFORMATION
  Report Type: 
  Country: None (occurrence: None)
  Receive Date: 20120420
  Receipt Date: 20120412
  Transmission Date: 20120825
  Serious: Yes (Hospitalization, Other)
  Sender: FDA-Public Use
  Company Number: CH-BRISTOL-MYERS SQUIBB COMPANY-16533721

PATIENT
  Age: 40 Year
  Sex: Male

DRUGS (5)
  1. PHENPROCOUMON [Suspect]
     Dosage: TABS
     Route: 065
     Dates: start: 20120113, end: 20120113
  2. ACETAMINOPHEN [Suspect]
     Dosage: TABS
     Route: 048
     Dates: start: 20120113, end: 20120113
  3. LORAZEPAM [Suspect]
     Dosage: TABS
     Route: 048
     Dates: start: 20120113, end: 20120113
  4. EFAVIRENZ [Suspect]
     Route: 048
     Dates: start: 20120113, end: 20120113
  5. ABACAVIR SULFATE AND LAMIVUDINE [Suspect]
     Dosage: TABS
     Route: 048
     Dates: start: 20120113, end: 20120113

REACTIONS (3)
  - SUICIDE ATTEMPT [None]
  - MULTIPLE DRUG OVERDOSE INTENTIONAL [None]
  - COMA [None]
